FAERS Safety Report 9843125 (Version 1)
Quarter: 2013Q4

REPORT INFORMATION
  Report Type: Spontaneous
  Country: US (occurrence: None)
  Receive Date: 20131219
  Receipt Date: 20131219
  Transmission Date: 20140711
  Serious: Yes (Death)
  Sender: FDA-Public Use
  Company Number: 163-20785-13082650

PATIENT
  Age: 80 Year
  Sex: Male

DRUGS (3)
  1. THALOMID (THALIDOMIDE) (50 MILLIGRAM, CAPSULES) [Suspect]
     Indication: MULTIPLE SCLEROSIS
     Dosage: 4 IN 1 D
     Route: 048
     Dates: start: 20120430, end: 20130819
  2. ACYCLOVIR (ACICLOVIR)(CAPSULES) [Concomitant]
  3. MEGACE(MEGESTROL ACETATE)(UNKNOWN) [Concomitant]

REACTIONS (2)
  - Plasma cell myeloma [None]
  - Bone marrow failure [None]
